FAERS Safety Report 7555579-8 (Version None)
Quarter: 2011Q2

REPORT INFORMATION
  Report Type: 
  Country: None (occurrence: None)
  Receive Date: 20110617
  Receipt Date: 20060608
  Transmission Date: 20111010
  Serious: Yes (Other)
  Sender: FDA-Public Use
  Company Number: PHMT2006CA01340

PATIENT
  Sex: Female

DRUGS (2)
  1. SANDOSTATIN LAR [Suspect]
     Indication: CARCINOID TUMOUR
     Dosage: 20 MG, QMO
     Dates: start: 20051215
  2. NOVAMILOR [Concomitant]

REACTIONS (2)
  - BIOPSY [None]
  - LOWER RESPIRATORY TRACT INFECTION [None]
